APPROVED DRUG PRODUCT: BRETYLIUM TOSYLATE
Active Ingredient: BRETYLIUM TOSYLATE
Strength: 50MG/ML
Dosage Form/Route: INJECTABLE;INJECTION
Application: A204386 | Product #001
Applicant: BRECKENRIDGE PHARMACEUTICAL INC
Approved: Dec 21, 2018 | RLD: No | RS: No | Type: DISCN